FAERS Safety Report 16260214 (Version 1)
Quarter: 2019Q2

REPORT INFORMATION
  Report Type: Spontaneous
  Country: US (occurrence: US)
  Receive Date: 20190327
  Receipt Date: 20190327
  Transmission Date: 20190711
  Serious: No
  Sender: FDA-Public Use
  Company Number: None

PATIENT
  Age: 28 Year
  Sex: Female

DRUGS (1)
  1. GLATIRAMER ACETATE (12X1ML) [Suspect]
     Active Substance: GLATIRAMER ACETATE
     Indication: MULTIPLE SCLEROSIS
     Route: 058
     Dates: start: 20190221, end: 20190317

REACTIONS (4)
  - Muscle spasms [None]
  - Product substitution issue [None]
  - Flushing [None]
  - Hallucination [None]

NARRATIVE: CASE EVENT DATE: 20190221
